FAERS Safety Report 15159347 (Version 1)
Quarter: 2018Q3

REPORT INFORMATION
  Report Type: Spontaneous
  Country: KR (occurrence: KR)
  Receive Date: 20180718
  Receipt Date: 20180718
  Transmission Date: 20181010
  Serious: Yes (Hospitalization, Other)
  Sender: FDA-Public Use
  Company Number: KR-BAYER-2018-130255

PATIENT
  Age: 42 Year
  Sex: Female

DRUGS (1)
  1. BETAFERON [Suspect]
     Active Substance: INTERFERON BETA-1B

REACTIONS (5)
  - Visual impairment [None]
  - Discomfort [None]
  - Multiple sclerosis [None]
  - Visual impairment [None]
  - Ageusia [None]

NARRATIVE: CASE EVENT DATE: 201604
